FAERS Safety Report 8806929 (Version 1)
Quarter: 2012Q4

REPORT INFORMATION
  Report Type: 
  Country: US (occurrence: US)
  Receive Date: 20120925
  Receipt Date: 20120925
  Transmission Date: 20130627
  Serious: Yes (Other)
  Sender: FDA-Public Use
  Company Number: US-BRISTOL-MYERS SQUIBB COMPANY-16961583

PATIENT
  Sex: Female

DRUGS (2)
  1. METFORMIN HCL [Suspect]
     Dates: end: 2012
  2. GLIMEPIRIDE [Suspect]
     Dates: end: 2012

REACTIONS (3)
  - Coronary artery disease [Unknown]
  - Renal disorder [Unknown]
  - Liver disorder [Unknown]
